FAERS Safety Report 24530114 (Version 2)
Quarter: 2024Q4

REPORT INFORMATION
  Report Type: Spontaneous
  Country: AU (occurrence: AU)
  Receive Date: 20241021
  Receipt Date: 20241216
  Transmission Date: 20250115
  Serious: Yes (Other)
  Sender: OTSUKA
  Company Number: AU-OTSUKA-2024_027931

PATIENT
  Age: 25 Year
  Sex: Female

DRUGS (2)
  1. ABILIFY MAINTENA [Suspect]
     Active Substance: ARIPIPRAZOLE
     Indication: Product used for unknown indication
     Dosage: UNK
     Route: 065
  2. ARIPIPRAZOLE [Suspect]
     Active Substance: ARIPIPRAZOLE
     Indication: Product used for unknown indication
     Dosage: 15 MG, QD
     Route: 048

REACTIONS (9)
  - Self-destructive behaviour [Unknown]
  - Hallucination [Unknown]
  - Screaming [Unknown]
  - Nightmare [Unknown]
  - Nervousness [Unknown]
  - Anger [Unknown]
  - Depression [Unknown]
  - Chest pain [Unknown]
  - Refusal of treatment by patient [Unknown]
